FAERS Safety Report 7597044-8 (Version None)
Quarter: 2011Q3

REPORT INFORMATION
  Report Type: 
  Country: None (occurrence: None)
  Receive Date: 20110708
  Receipt Date: 20110701
  Transmission Date: 20111222
  Serious: Yes (Hospitalization)
  Sender: FDA-Public Use
  Company Number: JP-PFIZER INC-2011141779

PATIENT
  Age: 42 Year
  Sex: Female

DRUGS (7)
  1. PREDNISOLONE [Concomitant]
     Route: 003
  2. LORAZEPAM [Suspect]
     Dosage: 0.5 MG, UNK
     Dates: start: 20090201, end: 20090301
  3. MUCOSTA [Concomitant]
  4. LORAZEPAM [Suspect]
     Dosage: 1 MG, UNK
     Dates: start: 20090301, end: 20090301
  5. ZANTAC [Concomitant]
  6. TEGRETOL [Suspect]
  7. ALPRAZOLAM [Suspect]
     Dosage: 0.4 MG, UNK
     Dates: start: 20090201, end: 20090301

REACTIONS (7)
  - HUMAN HERPES VIRUS 6 SEROLOGY POSITIVE [None]
  - CYTOMEGALOVIRUS INFECTION [None]
  - DRUG ERUPTION [None]
  - DRUG RASH WITH EOSINOPHILIA AND SYSTEMIC SYMPTOMS [None]
  - LYMPHADENOPATHY [None]
  - LIVER DISORDER [None]
  - PYREXIA [None]
